FAERS Safety Report 12421832 (Version 1)
Quarter: 2016Q2

REPORT INFORMATION
  Report Type: Spontaneous
  Country: US (occurrence: US)
  Receive Date: 20160531
  Receipt Date: 20160531
  Transmission Date: 20160815
  Serious: Yes (Hospitalization)
  Sender: FDA-Public Use
  Company Number: US-BIOGEN-2016BI00243372

PATIENT
  Sex: Female

DRUGS (1)
  1. AVONEX [Suspect]
     Active Substance: INTERFERON BETA-1A
     Indication: MULTIPLE SCLEROSIS
     Route: 065

REACTIONS (8)
  - Mobility decreased [Unknown]
  - Musculoskeletal disorder [Unknown]
  - Muscle spasms [Unknown]
  - Asthenia [Unknown]
  - Visual impairment [Unknown]
  - Speech disorder [Unknown]
  - Rash [Recovered/Resolved]
  - Peripheral swelling [Unknown]
